FAERS Safety Report 8578356-8 (Version None)
Quarter: 2012Q3

REPORT INFORMATION
  Report Type: 
  Country: None (occurrence: None)
  Receive Date: 20120808
  Receipt Date: 20120731
  Transmission Date: 20120928
  Serious: Yes (Other)
  Sender: FDA-Public Use
  Company Number: FR-JNJFOC-20120800046

PATIENT

DRUGS (16)
  1. ANTIBIOTICS (NOT SPECIFIED) [Suspect]
     Indication: ANTIBIOTIC PROPHYLAXIS
     Route: 065
  2. VANCOMYCIN [Suspect]
     Indication: PANCYTOPENIA
     Route: 065
  3. LEVOFLOXACIN [Suspect]
     Indication: PANCYTOPENIA
     Route: 042
  4. ANTIBIOTICS (NOT SPECIFIED) [Suspect]
     Indication: PYREXIA
     Route: 065
  5. LEVOFLOXACIN [Suspect]
     Indication: COUGH
     Route: 042
  6. LEVOFLOXACIN [Suspect]
     Route: 048
  7. LEVOFLOXACIN [Suspect]
     Indication: PYREXIA
     Route: 042
  8. LEVOFLOXACIN [Suspect]
     Indication: ANTIBIOTIC PROPHYLAXIS
     Route: 042
  9. LEVOFLOXACIN [Suspect]
     Route: 048
  10. LEVOFLOXACIN [Suspect]
     Route: 048
  11. ANTIBIOTICS (NOT SPECIFIED) [Suspect]
     Indication: COUGH
     Route: 065
  12. LEVOFLOXACIN [Suspect]
     Route: 048
  13. ANTIBIOTICS (NOT SPECIFIED) [Suspect]
     Indication: PANCYTOPENIA
     Route: 065
  14. VANCOMYCIN [Suspect]
     Indication: COUGH
     Route: 065
  15. VANCOMYCIN [Suspect]
     Indication: PYREXIA
     Route: 065
  16. VANCOMYCIN [Suspect]
     Indication: ANTIBIOTIC PROPHYLAXIS
     Route: 065

REACTIONS (5)
  - FEBRILE BONE MARROW APLASIA [None]
  - INFECTION [None]
  - FEBRILE NEUTROPENIA [None]
  - DRUG INEFFECTIVE [None]
  - OFF LABEL USE [None]
